FAERS Safety Report 6987679 (Version 4)
Quarter: 2021Q2

REPORT INFORMATION
  Report Type: Spontaneous
  Country: GB (occurrence: GB)
  Receive Date: 20090506
  Receipt Date: 20210601
  Transmission Date: 20210717
  Serious: Yes (Death, Other)
  Sender: FDA-Public Use
  Company Number: GB-ROCHE-629468

PATIENT
  Age: 32 Year
  Sex: Male
  Weight: 71 kg

DRUGS (3)
  1. PARACETAMOL [Concomitant]
     Active Substance: ACETAMINOPHEN
  2. ROACCUTANE [Suspect]
     Active Substance: ISOTRETINOIN
     Indication: ACNE
     Route: 065
  3. ALCOHOL. [Concomitant]
     Active Substance: ALCOHOL

REACTIONS (3)
  - Depression [Unknown]
  - Adverse reaction [Unknown]
  - Completed suicide [Fatal]
